FAERS Safety Report 9776150 (Version 3)
Quarter: 2013Q4

REPORT INFORMATION
  Report Type: Report from Study
  Country: US (occurrence: US)
  Receive Date: 20131220
  Receipt Date: 20131231
  Transmission Date: 20140711
  Serious: Yes (Hospitalization)
  Sender: FDA-Public Use
  Company Number: US-ONYX-2013-0286

PATIENT
  Age: 65 Year
  Sex: Male
  Weight: 83.54 kg

DRUGS (16)
  1. CARFILZOMIB [Suspect]
     Indication: PLASMA CELL MYELOMA
     Route: 042
     Dates: start: 20121129, end: 20130208
  2. PANOBINOSTAT [Concomitant]
     Indication: PLASMA CELL MYELOMA
     Route: 048
     Dates: start: 20121129, end: 20130211
  3. LOMOTIL [Concomitant]
     Indication: DIARRHOEA
     Route: 048
     Dates: start: 20121206
  4. ACYCLOVIR [Concomitant]
     Indication: INFECTION
     Route: 048
     Dates: start: 20121206
  5. BENADRYL [Concomitant]
     Indication: SEASONAL ALLERGY
     Route: 048
     Dates: start: 20121206
  6. LORTAB [Concomitant]
     Indication: PAIN
     Route: 048
     Dates: start: 20090730
  7. RESTORIL [Concomitant]
     Indication: INSOMNIA
     Route: 048
     Dates: start: 20120830
  8. XANAX [Concomitant]
     Indication: ANXIETY
     Route: 048
     Dates: start: 20110811
  9. CLONIDINE HCL [Concomitant]
     Indication: ANXIETY
     Route: 048
     Dates: start: 20121227
  10. NORVASC [Concomitant]
     Indication: HYPERTENSION
     Route: 048
     Dates: start: 20121228
  11. MUCINEX [Concomitant]
     Indication: NASAL CONGESTION
     Route: 048
     Dates: start: 20130102
  12. LEVAQUIN [Concomitant]
     Indication: PRODUCT USED FOR UNKNOWN INDICATION
  13. DILAUDID [Concomitant]
     Indication: PRODUCT USED FOR UNKNOWN INDICATION
  14. FLOMAX [Concomitant]
     Indication: PRODUCT USED FOR UNKNOWN INDICATION
  15. FENTANYL [Concomitant]
     Indication: PRODUCT USED FOR UNKNOWN INDICATION
  16. ALBUTEROL [Concomitant]
     Indication: PRODUCT USED FOR UNKNOWN INDICATION

REACTIONS (1)
  - Haemolytic uraemic syndrome [Recovered/Resolved]
